FAERS Safety Report 5330155-6 (Version None)
Quarter: 2007Q2

REPORT INFORMATION
  Report Type: 
  Country: None (occurrence: None)
  Receive Date: 20070521
  Receipt Date: 20070508
  Transmission Date: 20071010
  Serious: Yes (Hospitalization, Other)
  Sender: FDA-Public Use
  Company Number: US-ELI_LILLY_AND_COMPANY-US200702005249

PATIENT
  Age: 82 Year
  Sex: Female

DRUGS (8)
  1. PLAVIX [Concomitant]
     Dosage: 75 MG, DAILY (1/D)
  2. DYAZIDE [Concomitant]
  3. CARTIA XT [Concomitant]
     Dosage: 120 MG, DAILY (1/D)
  4. ZETIA [Concomitant]
     Dosage: 10 MG, DAILY (1/D)
  5. CELEBREX [Concomitant]
  6. FORTEO [Suspect]
     Indication: OSTEOPOROSIS
     Dosage: 20 UG, DAILY (1/D)
     Dates: start: 20030301, end: 20050301
  7. BONIVA [Concomitant]
     Indication: OSTEOPOROSIS
     Route: 042
  8. MIACALCIN [Concomitant]
     Indication: OSTEOPOROSIS

REACTIONS (4)
  - BONE DENSITY DECREASED [None]
  - LUMBAR VERTEBRAL FRACTURE [None]
  - PERIPHERAL VASCULAR DISORDER [None]
  - SYNCOPE VASOVAGAL [None]
